FAERS Safety Report 8099573-X (Version None)
Quarter: 2012Q1

REPORT INFORMATION
  Report Type: 
  Country: None (occurrence: None)
  Receive Date: 20120129
  Receipt Date: 20111006
  Transmission Date: 20120608
  Serious: No
  Sender: FDA-Public Use
  Company Number: US-ABBOTT-11P-163-0861965-00

PATIENT
  Sex: Male

DRUGS (6)
  1. LOSARTAN POTASSIUM [Concomitant]
     Indication: PRODUCT USED FOR UNKNOWN INDICATION
  2. OMEPRAZOLE [Concomitant]
     Indication: PRODUCT USED FOR UNKNOWN INDICATION
  3. ENTOCORT EC [Concomitant]
     Indication: PRODUCT USED FOR UNKNOWN INDICATION
  4. SIMVASTATIN [Concomitant]
     Indication: PRODUCT USED FOR UNKNOWN INDICATION
  5. HUMIRA [Suspect]
     Indication: CROHN'S DISEASE
     Dosage: 4 PENS, DAY 1
     Route: 058
     Dates: start: 20111001, end: 20111001
  6. HUMIRA [Suspect]
     Indication: SACROILIITIS
     Dosage: 2 PENS, DAY 15
     Route: 058

REACTIONS (4)
  - NERVOUSNESS [None]
  - MYALGIA [None]
  - FATIGUE [None]
  - PAIN [None]
